FAERS Safety Report 14359123 (Version 1)
Quarter: 2018Q1

REPORT INFORMATION
  Report Type: Spontaneous
  Country: US (occurrence: US)
  Receive Date: 20180105
  Receipt Date: 20180105
  Transmission Date: 20180509
  Serious: No
  Sender: FDA-Public Use
  Company Number: US-009507513-1712USA013152

PATIENT
  Age: 20 Year
  Sex: Female
  Weight: 77.1 kg

DRUGS (3)
  1. NEXPLANON [Suspect]
     Active Substance: ETONOGESTREL
     Indication: CONTRACEPTION
     Dosage: 1 DF, 3 YEARS IMPLANT
     Route: 059
     Dates: start: 20150713
  2. IBUPROFEN. [Concomitant]
     Active Substance: IBUPROFEN
  3. NORETHINDRONE. [Concomitant]
     Active Substance: NORETHINDRONE

REACTIONS (2)
  - Endometriosis [Unknown]
  - Ovarian cyst [Unknown]

NARRATIVE: CASE EVENT DATE: 201609
